FAERS Safety Report 7506394-2 (Version None)
Quarter: 2011Q2

REPORT INFORMATION
  Report Type: 
  Country: None (occurrence: None)
  Receive Date: 20110520
  Receipt Date: 20110509
  Transmission Date: 20111010
  Serious: No
  Sender: FDA-Public Use
  Company Number: 2011-00359

PATIENT
  Age: 37 Year
  Sex: Female
  Weight: 43.5453 kg

DRUGS (1)
  1. OXYMETAZOLINE HCL [Suspect]
     Dosage: 1 DOSE
     Dates: start: 20110506, end: 20110506

REACTIONS (2)
  - AGEUSIA [None]
  - ANOSMIA [None]
